FAERS Safety Report 18697020 (Version 1)
Quarter: 2021Q1

REPORT INFORMATION
  Report Type: Spontaneous
  Country: ES (occurrence: ES)
  Receive Date: 20210104
  Receipt Date: 20210104
  Transmission Date: 20210419
  Serious: Yes (Other)
  Sender: FDA-Public Use
  Company Number: ES-PFIZER INC-2020515925

PATIENT
  Age: 67 Year
  Sex: Male

DRUGS (1)
  1. SOLU?MODERIN [Suspect]
     Active Substance: METHYLPREDNISOLONE
     Indication: VASCULITIS
     Dosage: 125 MG, 1X/DAY
     Route: 042
     Dates: start: 20200519, end: 20200520

REACTIONS (2)
  - Diabetic metabolic decompensation [Recovered/Resolved]
  - Off label use [Unknown]

NARRATIVE: CASE EVENT DATE: 20200519
